FAERS Safety Report 9492010 (Version 2)
Quarter: 2013Q3

REPORT INFORMATION
  Report Type: Spontaneous
  Country: US (occurrence: US)
  Receive Date: 20130830
  Receipt Date: 20130913
  Transmission Date: 20140515
  Serious: Yes (Other)
  Sender: FDA-Public Use
  Company Number: US-TEVA-429396USA

PATIENT
  Age: 48 Year
  Sex: Female
  Weight: 55.39 kg

DRUGS (2)
  1. PARAGARD 380A [Suspect]
     Indication: CONTRACEPTION
     Route: 015
     Dates: start: 20130815, end: 20130827
  2. WELLBUTRIN [Concomitant]
     Indication: DEPRESSION

REACTIONS (4)
  - Endometritis [Recovered/Resolved]
  - Pain [Recovered/Resolved]
  - Metrorrhagia [Recovered/Resolved]
  - Abdominal pain [Recovered/Resolved]
